FAERS Safety Report 9917540 (Version 2)
Quarter: 2014Q2

REPORT INFORMATION
  Report Type: Report from Study
  Country: AU (occurrence: AU)
  Receive Date: 20140221
  Receipt Date: 20140422
  Transmission Date: 20141212
  Serious: Yes (Hospitalization)
  Sender: FDA-Public Use
  Company Number: PHHY2014AU021594

PATIENT
  Sex: Male

DRUGS (2)
  1. CLOZARIL [Suspect]
     Dosage: 400 MG, UNK
     Dates: start: 20031022
  2. CLOZARIL [Suspect]
     Dosage: UNK
     Dates: start: 20140414

REACTIONS (1)
  - General physical health deterioration [Unknown]
